FAERS Safety Report 21390833 (Version 8)
Quarter: 2024Q3

REPORT INFORMATION
  Report Type: Spontaneous
  Country: US (occurrence: US)
  Receive Date: 20220929
  Receipt Date: 20240723
  Transmission Date: 20241016
  Serious: No
  Sender: PFIZER
  Company Number: US-PFIZER INC-PV202200072351

PATIENT
  Age: 65 Year
  Sex: Male

DRUGS (3)
  1. INLYTA [Suspect]
     Active Substance: AXITINIB
     Dosage: UNK
  2. INLYTA [Suspect]
     Active Substance: AXITINIB
     Dosage: 5 MG, DAILY
  3. INLYTA [Suspect]
     Active Substance: AXITINIB
     Dosage: 1 MG

REACTIONS (11)
  - Off label use [Unknown]
  - Dysphonia [Unknown]
  - Arthralgia [Unknown]
  - Aphonia [Unknown]
  - Urinary tract infection [Unknown]
  - Stomatitis [Recovering/Resolving]
  - Skin lesion [Recovering/Resolving]
  - Gait inability [Recovered/Resolved]
  - Hypertension [Unknown]
  - Pain in extremity [Unknown]
  - Blister [Recovering/Resolving]
